FAERS Safety Report 8043438-6 (Version None)
Quarter: 2012Q1

REPORT INFORMATION
  Report Type: 
  Country: None (occurrence: None)
  Receive Date: 20120112
  Receipt Date: 20120110
  Transmission Date: 20120608
  Serious: Yes (Death)
  Sender: FDA-Public Use
  Company Number: US-ABBOTT-12P-163-0891539-00

PATIENT
  Sex: Male
  Weight: 46.762 kg

DRUGS (1)
  1. MARINOL [Suspect]
     Indication: DECREASED APPETITE
     Dates: start: 20111027, end: 20111201

REACTIONS (2)
  - OFF LABEL USE [None]
  - NASAL SINUS CANCER [None]
